FAERS Safety Report 5838925-2 (Version None)
Quarter: 2008Q3

REPORT INFORMATION
  Report Type: 
  Country: None (occurrence: None)
  Receive Date: 20080808
  Receipt Date: 20080731
  Transmission Date: 20090109
  Serious: Yes (Other)
  Sender: FDA-Public Use
  Company Number: PHHY2008FR16706

PATIENT
  Age: 52 Year
  Sex: Male

DRUGS (3)
  1. CLOZAPINE [Suspect]
     Indication: DEMENTIA
     Route: 065
  2. TEGRETOL [Concomitant]
     Indication: EPILEPSY
     Dosage: UNK
  3. EQUANIL [Concomitant]

REACTIONS (1)
  - PANCYTOPENIA [None]
